FAERS Safety Report 4469620-2 (Version None)
Quarter: 2004Q4

REPORT INFORMATION
  Report Type: 
  Country: None (occurrence: None)
  Receive Date: 20041008
  Receipt Date: 20041001
  Transmission Date: 20050328
  Serious: Yes (Hospitalization)
  Sender: FDA-Public Use
  Company Number: US-ABBOTT-04P-163-0275712-00

PATIENT
  Sex: Male
  Weight: 54.48 kg

DRUGS (5)
  1. HUMIRA [Suspect]
     Indication: RHEUMATOID ARTHRITIS
     Route: 058
     Dates: start: 20030301, end: 20031001
  2. HUMIRA [Suspect]
     Route: 058
     Dates: start: 20040101
  3. METHYLPREDNISOLONE SODIUM SUCCINATE [Concomitant]
     Indication: RHEUMATOID ARTHRITIS
     Route: 050
     Dates: start: 19910101
  4. ESOMEPRAZOLE [Concomitant]
     Indication: DYSPEPSIA
     Route: 048
     Dates: start: 19990701
  5. ALENDRONATE SODIUM [Concomitant]
     Indication: OSTEOPOROSIS PROPHYLAXIS
     Route: 050
     Dates: start: 19960101

REACTIONS (6)
  - CONDITION AGGRAVATED [None]
  - DRUG INEFFECTIVE [None]
  - PYREXIA [None]
  - RED BLOOD CELL COUNT DECREASED [None]
  - RHEUMATOID ARTHRITIS [None]
  - WHITE BLOOD CELL COUNT INCREASED [None]
